FAERS Safety Report 13877579 (Version 3)
Quarter: 2018Q2

REPORT INFORMATION
  Report Type: Spontaneous
  Country: US (occurrence: US)
  Receive Date: 20170817
  Receipt Date: 20180426
  Transmission Date: 20180711
  Serious: No
  Sender: FDA-Public Use
  Company Number: US-PFIZER INC-2017354797

PATIENT
  Age: 78 Year
  Sex: Female

DRUGS (1)
  1. XELJANZ XR [Suspect]
     Active Substance: TOFACITINIB CITRATE
     Dosage: 11 MG, UNK
     Dates: start: 201605

REACTIONS (5)
  - Eye swelling [Unknown]
  - Fatigue [Unknown]
  - Eye pruritus [Unknown]
  - Rash [Not Recovered/Not Resolved]
  - Viral infection [Recovered/Resolved]
